FAERS Safety Report 6816614-5 (Version None)
Quarter: 2010Q3

REPORT INFORMATION
  Report Type: 
  Country: None (occurrence: None)
  Receive Date: 20100706
  Receipt Date: 20100621
  Transmission Date: 20110219
  Serious: No
  Sender: FDA-Public Use
  Company Number: US-B.I. PHARMACEUTICALS,INC./RIDGEFIELD-2010-BP-06221BP

PATIENT
  Sex: Female

DRUGS (3)
  1. ZANTAC 150 [Suspect]
     Indication: GASTROOESOPHAGEAL REFLUX DISEASE
     Dosage: 150 MG
     Route: 048
     Dates: start: 20100301
  2. ACIFEX [Suspect]
     Indication: GASTROOESOPHAGEAL REFLUX DISEASE
     Dates: start: 19900101
  3. MEDICATION NOT FURTHER SPECIFIED [Concomitant]
     Dates: start: 19900101

REACTIONS (3)
  - MULTIPLE CHEMICAL SENSITIVITY [None]
  - PRURITUS [None]
  - SWELLING FACE [None]
